FAERS Safety Report 9431897 (Version 1)
Quarter: 2013Q3

REPORT INFORMATION
  Report Type: Spontaneous
  Country: US (occurrence: US)
  Receive Date: 20130731
  Receipt Date: 20130731
  Transmission Date: 20140515
  Serious: Yes (Other)
  Sender: FDA-Public Use
  Company Number: PHEH2013US015962

PATIENT
  Sex: Male

DRUGS (5)
  1. EXELON PATCH [Suspect]
     Dosage: 9.5 MG, UNK
  2. PRADAXA [Concomitant]
     Dosage: UNK UKN, UNK
  3. VITAMIN B12 [Concomitant]
     Dosage: UNK UKN, UNK
  4. MULTI-VIT [Concomitant]
     Dosage: UNK UKN, UNK
  5. LORATADINE [Concomitant]
     Indication: RHINORRHOEA
     Dosage: 10 MG, UNK

REACTIONS (1)
  - Thrombosis [Unknown]
